FAERS Safety Report 4375650-1 (Version None)
Quarter: 2004Q2

REPORT INFORMATION
  Report Type: 
  Country: None (occurrence: None)
  Receive Date: 20040610
  Receipt Date: 20040607
  Transmission Date: 20050107
  Serious: Yes (Hospitalization)
  Sender: FDA-Public Use
  Company Number: US-GLAXOSMITHKLINE-A0513597A

PATIENT
  Age: 56 Year
  Sex: Female
  Weight: 100 kg

DRUGS (3)
  1. TOPOTECAN [Suspect]
     Dosage: .15MGM2 PER DAY
     Route: 042
     Dates: start: 20040426
  2. CISPLATIN [Suspect]
     Dosage: 20MGM2 WEEKLY
     Route: 042
     Dates: start: 20040426
  3. RADIATION THERAPY [Concomitant]

REACTIONS (3)
  - DEEP VEIN THROMBOSIS [None]
  - OEDEMA PERIPHERAL [None]
  - PULMONARY EMBOLISM [None]
